FAERS Safety Report 7921513-1 (Version None)
Quarter: 2011Q4

REPORT INFORMATION
  Report Type: 
  Country: None (occurrence: None)
  Receive Date: 20111117
  Receipt Date: 20110413
  Transmission Date: 20120403
  Serious: No
  Sender: FDA-Public Use
  Company Number: US-MYLANLABS-2011S1007868

PATIENT
  Sex: Male

DRUGS (2)
  1. MAXZIDE [Suspect]
     Route: 048
  2. MAXZIDE [Suspect]
     Route: 048

REACTIONS (1)
  - NEPHROLITHIASIS [None]
